FAERS Safety Report 15107777 (Version 2)
Quarter: 2019Q1

REPORT INFORMATION
  Report Type: Spontaneous
  Country: US (occurrence: US)
  Receive Date: 20180704
  Receipt Date: 20190330
  Transmission Date: 20190417
  Serious: No
  Sender: FDA-Public Use
  Company Number: US-SHIRE-US201823424

PATIENT
  Sex: Female

DRUGS (1)
  1. GATTEX [Suspect]
     Active Substance: TEDUGLUTIDE\WATER
     Indication: SHORT-BOWEL SYNDROME
     Dosage: 0.320 ML, UNK
     Route: 058
     Dates: start: 20170707, end: 2018

REACTIONS (2)
  - Diarrhoea [Recovered/Resolved]
  - Stoma complication [Recovered/Resolved]
